FAERS Safety Report 25453138 (Version 2)
Quarter: 2025Q3

REPORT INFORMATION
  Report Type: Report from Study
  Country: CA (occurrence: CA)
  Receive Date: 20250618
  Receipt Date: 20250708
  Transmission Date: 20251021
  Serious: Yes (Death, Hospitalization, Other)
  Sender: HLS THERAPEUTICS
  Company Number: CA-HLS-202501455

PATIENT
  Age: 78 Year
  Sex: Female

DRUGS (1)
  1. CLOZARIL [Suspect]
     Active Substance: CLOZAPINE
     Indication: Schizoaffective disorder
     Route: 048
     Dates: start: 20160609, end: 20250427

REACTIONS (3)
  - Death [Fatal]
  - Pneumonia aspiration [Fatal]
  - Product use in unapproved indication [Unknown]

NARRATIVE: CASE EVENT DATE: 20250425
